FAERS Safety Report 6636253-9 (Version None)
Quarter: 2010Q1

REPORT INFORMATION
  Report Type: 
  Country: None (occurrence: None)
  Receive Date: 20100311
  Receipt Date: 20100301
  Transmission Date: 20100710
  Serious: Yes (Death)
  Sender: FDA-Public Use
  Company Number: 525014

PATIENT
  Age: 10 Year
  Sex: Male

DRUGS (6)
  1. CYTARABINE [Suspect]
     Indication: T-CELL TYPE ACUTE LEUKAEMIA
  2. METHOTREXATE [Suspect]
     Indication: T-CELL TYPE ACUTE LEUKAEMIA
  3. VINCRISTINE SULFATE [Suspect]
     Indication: T-CELL TYPE ACUTE LEUKAEMIA
  4. CYCLOPHOSPHAMIDE [Suspect]
     Indication: T-CELL TYPE ACUTE LEUKAEMIA
  5. DAUNORUBICIN HCL [Suspect]
     Indication: T-CELL TYPE ACUTE LEUKAEMIA
  6. DEXAMETHASONE [Suspect]
     Indication: T-CELL TYPE ACUTE LEUKAEMIA

REACTIONS (6)
  - ACUTE LYMPHOCYTIC LEUKAEMIA [None]
  - ACUTE MYELOID LEUKAEMIA [None]
  - CYTOGENETIC ABNORMALITY [None]
  - MALIGNANT NEOPLASM PROGRESSION [None]
  - MYELODYSPLASTIC SYNDROME [None]
  - STEM CELL TRANSPLANT [None]
